FAERS Safety Report 20978856 (Version 1)
Quarter: 2022Q2

REPORT INFORMATION
  Report Type: Spontaneous
  Country: US (occurrence: US)
  Receive Date: 20220619
  Receipt Date: 20220619
  Transmission Date: 20220721
  Serious: No
  Sender: FDA-Public Use
  Company Number: US-JNJFOC-20220628586

PATIENT
  Sex: Male

DRUGS (1)
  1. ZYTIGA [Suspect]
     Active Substance: ABIRATERONE ACETATE
     Indication: Product used for unknown indication
     Dosage: 250MG TAB TAKE 1 TABLET (250 MG TOTAL) BY MOUTH DAILY
     Route: 048
     Dates: start: 20210927

REACTIONS (2)
  - Hyperhidrosis [Unknown]
  - Off label use [Unknown]
